FAERS Safety Report 9995364 (Version 1)
Quarter: 2014Q1

REPORT INFORMATION
  Report Type: Spontaneous
  Country: US (occurrence: None)
  Receive Date: 20140225
  Receipt Date: 20140225
  Transmission Date: 20141002
  Serious: Yes (Other)
  Sender: FDA-Public Use
  Company Number: 2013-188

PATIENT
  Age: 54 Year
  Sex: Male

DRUGS (1)
  1. PRIALT (ZICONOTIDE) INTRATHECAL INFUSION [Suspect]
     Indication: SPINAL OSTEOARTHRITIS
     Dosage: SINGLE
     Route: 037

REACTIONS (4)
  - Hallucination [None]
  - Speech disorder [None]
  - Staring [None]
  - Dysphonia [None]
